FAERS Safety Report 8168874-9 (Version None)
Quarter: 2012Q1

REPORT INFORMATION
  Report Type: 
  Country: None (occurrence: None)
  Receive Date: 20120227
  Receipt Date: 20120221
  Transmission Date: 20120608
  Serious: Yes (Other)
  Sender: FDA-Public Use
  Company Number: US-BAXTER-2012BH000793

PATIENT
  Age: 28 Year
  Sex: Male
  Weight: 90 kg

DRUGS (4)
  1. SODIUM CHLORIDE 0.9% IN PLASTIC CONTAINER [Suspect]
     Route: 061
     Dates: start: 20111228, end: 20111228
  2. ANCEF [Concomitant]
     Indication: PREMEDICATION
     Route: 065
  3. SODIUM CHLORIDE 0.9% IN PLASTIC CONTAINER [Suspect]
     Route: 061
     Dates: start: 20111228, end: 20111228
  4. SODIUM CHLORIDE 0.9% IN PLASTIC CONTAINER [Suspect]
     Indication: WOUND TREATMENT
     Route: 061
     Dates: start: 20111228, end: 20111228

REACTIONS (3)
  - PRODUCT CONTAMINATION PHYSICAL [None]
  - MALAISE [None]
  - STAPHYLOCOCCUS TEST POSITIVE [None]
